FAERS Safety Report 5440743-4 (Version None)
Quarter: 2007Q3

REPORT INFORMATION
  Report Type: 
  Country: None (occurrence: None)
  Receive Date: 20070831
  Receipt Date: 20070821
  Transmission Date: 20080115
  Serious: Yes (Other)
  Sender: FDA-Public Use
  Company Number: US-ABBOTT-07P-163-0378753-00

PATIENT
  Age: 33 Year
  Sex: Female

DRUGS (5)
  1. RITONAVIR SOFT GELATIN CAPSULES [Suspect]
     Indication: SYSTEMIC ANTIVIRAL TREATMENT
  2. DIDANOSINE [Suspect]
     Indication: SYSTEMIC ANTIVIRAL TREATMENT
  3. NELFINAVIR [Suspect]
     Indication: SYSTEMIC ANTIVIRAL TREATMENT
  4. STAVUDINE [Suspect]
     Indication: SYSTEMIC ANTIVIRAL TREATMENT
  5. AMPRENAVIR [Suspect]
     Indication: SYSTEMIC ANTIVIRAL TREATMENT

REACTIONS (2)
  - ABORTION SPONTANEOUS [None]
  - DRUG EXPOSURE DURING PREGNANCY [None]
